FAERS Safety Report 9004775 (Version 1)
Quarter: 2013Q1

REPORT INFORMATION
  Report Type: Spontaneous
  Country: US (occurrence: US)
  Receive Date: 20130109
  Receipt Date: 20130109
  Transmission Date: 20140127
  Serious: No
  Sender: FDA-Public Use
  Company Number: US-PFIZER INC-2013007235

PATIENT
  Age: 91 Year
  Sex: Female
  Weight: 54.42 kg

DRUGS (1)
  1. ADVIL PM [Suspect]
     Indication: INSOMNIA
     Dosage: 200/25MG, DAILY
     Route: 048
     Dates: start: 20130105, end: 20130106

REACTIONS (4)
  - Poor quality drug administered [Unknown]
  - Foreign body [Unknown]
  - Product physical issue [Unknown]
  - Product taste abnormal [Unknown]
